FAERS Safety Report 21889909 (Version 3)
Quarter: 2024Q1

REPORT INFORMATION
  Report Type: Report from Study
  Country: BR (occurrence: BR)
  Receive Date: 20230120
  Receipt Date: 20240130
  Transmission Date: 20240409
  Serious: Yes (Hospitalization)
  Sender: FDA-Public Use
  Company Number: BR-002147023-NVSC2023BR010620

PATIENT
  Age: 69 Year
  Sex: Male

DRUGS (1)
  1. GILENYA [Suspect]
     Active Substance: FINGOLIMOD HYDROCHLORIDE
     Indication: Multiple sclerosis
     Dosage: UNK (6 YEARS AGO AND STOPPED 5 TO 6 MONTH AGO)
     Route: 065

REACTIONS (6)
  - Neoplasm skin [Unknown]
  - Skin cancer [Unknown]
  - Depressed mood [Unknown]
  - Emotional disorder [Unknown]
  - Skin wound [Unknown]
  - Influenza [Unknown]
